FAERS Safety Report 8528825-1 (Version None)
Quarter: 2012Q3

REPORT INFORMATION
  Report Type: 
  Country: None (occurrence: None)
  Receive Date: 20120723
  Receipt Date: 20120717
  Transmission Date: 20120928
  Serious: No
  Sender: FDA-Public Use
  Company Number: US-PFIZER INC-2012155700

PATIENT
  Sex: Male

DRUGS (5)
  1. ACETYLSALICYLIC ACID [Concomitant]
     Dosage: 81 MG, 1X/DAY
  2. TAMSULOSIN [Concomitant]
     Dosage: 0.7 MG, 1X/DAY
  3. XALKORI [Suspect]
     Indication: NON-SMALL CELL LUNG CANCER
     Dosage: 250 MG, 2X/DAY
     Dates: start: 20120423, end: 20120625
  4. OMEPRAZOLE [Concomitant]
     Dosage: 20 MG, 1X/DAY
  5. LISINOPRIL [Concomitant]
     Dosage: 10 MG, 1X/DAY

REACTIONS (2)
  - BLOOD COUNT ABNORMAL [None]
  - NEUTROPENIA [None]
